FAERS Safety Report 8047369-7 (Version None)
Quarter: 2012Q1

REPORT INFORMATION
  Report Type: 
  Country: None (occurrence: None)
  Receive Date: 20120116
  Receipt Date: 20120109
  Transmission Date: 20120608
  Serious: Yes (Hospitalization)
  Sender: FDA-Public Use
  Company Number: FR-MEDIMMUNE-MEDI-0014058

PATIENT
  Sex: Female
  Weight: 7.95 kg

DRUGS (1)
  1. SYNAGIS [Suspect]
     Route: 030
     Dates: start: 20111021, end: 20111021

REACTIONS (4)
  - CARDIAC FAILURE [None]
  - RESPIRATORY SYNCYTIAL VIRUS BRONCHIOLITIS [None]
  - DRUG INEFFECTIVE [None]
  - ATRIAL SEPTAL DEFECT [None]
